FAERS Safety Report 5830648-9 (Version None)
Quarter: 2008Q3

REPORT INFORMATION
  Report Type: 
  Country: None (occurrence: None)
  Receive Date: 20080801
  Receipt Date: 20070910
  Transmission Date: 20090109
  Serious: Yes (Other)
  Sender: FDA-Public Use
  Company Number: US-BRISTOL-MYERS SQUIBB COMPANY-13902226

PATIENT
  Sex: Male
  Weight: 84 kg

DRUGS (1)
  1. COUMADIN [Suspect]
     Dosage: THERAPY CHANGED TO 5 MG - 4 X WEEK AND 7.5 MG - 3 X,
     Dates: start: 20070615

REACTIONS (1)
  - INTERNATIONAL NORMALISED RATIO FLUCTUATION [None]
